FAERS Safety Report 25645407 (Version 1)
Quarter: 2025Q3

REPORT INFORMATION
  Report Type: Spontaneous
  Country: US (occurrence: US)
  Receive Date: 20250805
  Receipt Date: 20250805
  Transmission Date: 20251020
  Serious: Yes (Hospitalization, Other)
  Sender: EPIC PHARM
  Company Number: US-EPICPHARMA-US-2025EPCLIT00902

PATIENT
  Age: 71 Year
  Sex: Male

DRUGS (8)
  1. TIMOLOL MALEATE [Suspect]
     Active Substance: TIMOLOL MALEATE
     Indication: Intraocular pressure test abnormal
  2. LATANOPROST [Suspect]
     Active Substance: LATANOPROST
     Indication: Intraocular pressure test abnormal
  3. NETARSUDIL [Suspect]
     Active Substance: NETARSUDIL
     Indication: Intraocular pressure test abnormal
  4. LATANOPROST\NETARSUDIL MESYLATE [Suspect]
     Active Substance: LATANOPROST\NETARSUDIL MESYLATE
     Indication: Intraocular pressure test abnormal
  5. BRIMONIDINE [Suspect]
     Active Substance: BRIMONIDINE TARTRATE
     Indication: Intraocular pressure test abnormal
  6. DORZOLAMIDE\TIMOLOL [Suspect]
     Active Substance: DORZOLAMIDE\TIMOLOL
     Indication: Intraocular pressure test abnormal
  7. DORZOLAMIDE\TIMOLOL [Suspect]
     Active Substance: DORZOLAMIDE\TIMOLOL
  8. TRAVOPROST [Suspect]
     Active Substance: TRAVOPROST
     Indication: Intraocular pressure test abnormal

REACTIONS (2)
  - Hypotony of eye [Recovered/Resolved]
  - Disease progression [Recovered/Resolved]
